FAERS Safety Report 5922790-9 (Version None)
Quarter: 2008Q4

REPORT INFORMATION
  Report Type: 
  Country: None (occurrence: None)
  Receive Date: 20081017
  Receipt Date: 20081013
  Transmission Date: 20090506
  Serious: Yes (Hospitalization)
  Sender: FDA-Public Use
  Company Number: DE-B.I. PHARMACEUTICALS,INC./RIDGEFIELD-2008-DE-06117DE

PATIENT
  Sex: Male
  Weight: 78 kg

DRUGS (1)
  1. AGGRENOX [Suspect]
     Indication: ISCHAEMIC CEREBRAL INFARCTION
     Dosage: 2ANZ
     Route: 048
     Dates: start: 20060701, end: 20080901

REACTIONS (1)
  - GASTRIC PERFORATION [None]
